FAERS Safety Report 4457985-7 (Version None)
Quarter: 2004Q3

REPORT INFORMATION
  Report Type: 
  Country: None (occurrence: None)
  Receive Date: 20040917
  Receipt Date: 20040427
  Transmission Date: 20050211
  Serious: Yes (Other)
  Sender: FDA-Public Use
  Company Number: US-JNJFOC-20040406698

PATIENT
  Sex: Female

DRUGS (1)
  1. TOPAMAX [Suspect]
     Indication: GRAND MAL CONVULSION
     Dosage: 125 MG, 2 IN 1 DAY, ORAL; 100 MG, 2  IN 1 DAY, ORAL
     Route: 048

REACTIONS (1)
  - BLOOD BICARBONATE DECREASED [None]
